FAERS Safety Report 11610679 (Version 1)
Quarter: 2015Q4

REPORT INFORMATION
  Report Type: Spontaneous
  Country: US (occurrence: None)
  Receive Date: 20151007
  Receipt Date: 20151007
  Transmission Date: 20160304
  Serious: Yes (Other)
  Sender: FDA-Public Use
  Company Number: None

PATIENT
  Age: 74 Year
  Sex: Male
  Weight: 85.73 kg

DRUGS (2)
  1. ATENOLOL 25MG [Suspect]
     Active Substance: ATENOLOL
     Route: 048
  2. BICALUTAMIDE 50MG TEVA [Suspect]
     Active Substance: BICALUTAMIDE
     Route: 048

REACTIONS (2)
  - Palpitations [None]
  - Product physical issue [None]
